FAERS Safety Report 5735352-3 (Version None)
Quarter: 2008Q2

REPORT INFORMATION
  Report Type: 
  Country: None (occurrence: None)
  Receive Date: 20080508
  Receipt Date: 20080428
  Transmission Date: 20081010
  Serious: Yes (Hospitalization)
  Sender: FDA-Public Use
  Company Number: 2008BI006164

PATIENT
  Age: 44 Year
  Sex: Female

DRUGS (1)
  1. TYSABRI [Suspect]
     Indication: MULTIPLE SCLEROSIS
     Dosage: 300 MG QM IV
     Route: 042
     Dates: start: 20080109

REACTIONS (5)
  - BALANCE DISORDER [None]
  - CEREBELLAR SYNDROME [None]
  - DEEP VEIN THROMBOSIS [None]
  - FATIGUE [None]
  - PULMONARY EMBOLISM [None]
